FAERS Safety Report 13637722 (Version 1)
Quarter: 2017Q2

REPORT INFORMATION
  Report Type: Spontaneous
  Country: FR (occurrence: FR)
  Receive Date: 20170609
  Receipt Date: 20170609
  Transmission Date: 20170830
  Serious: Yes (Life-Threatening)
  Sender: FDA-Public Use
  Company Number: PHHY2017FR079585

PATIENT
  Age: 30 Year
  Sex: Female

DRUGS (4)
  1. HYDROXYCHLOROQUINE [Suspect]
     Active Substance: HYDROXYCHLOROQUINE
     Indication: SYSTEMIC LUPUS ERYTHEMATOSUS
     Dosage: 200 MG, BID
     Route: 065
  2. PREDNISONE. [Suspect]
     Active Substance: PREDNISONE
     Indication: SYSTEMIC LUPUS ERYTHEMATOSUS
     Dosage: 5 MG, QD
     Route: 065
  3. OXYTOCIN. [Suspect]
     Active Substance: OXYTOCIN
     Indication: LABOUR INDUCTION
     Dosage: UNK
     Route: 065
  4. OXYTOCIN. [Suspect]
     Active Substance: OXYTOCIN
     Dosage: DOSE INCREASED UP TO 17.5 MU/MIN
     Route: 065

REACTIONS (6)
  - Postpartum haemorrhage [Recovered/Resolved]
  - Normal newborn [Unknown]
  - Uterine inversion [Recovered/Resolved]
  - Uterine scar [Recovered/Resolved]
  - Maternal exposure during pregnancy [Unknown]
  - Uterine atony [Recovered/Resolved]
